FAERS Safety Report 6615307-7 (Version None)
Quarter: 2010Q1

REPORT INFORMATION
  Report Type: 
  Country: None (occurrence: None)
  Receive Date: 20100305
  Receipt Date: 20091204
  Transmission Date: 20100710
  Serious: No
  Sender: FDA-Public Use
  Company Number: A0796201A

PATIENT
  Age: 54 Year
  Sex: Female
  Weight: 102.7 kg

DRUGS (13)
  1. REQUIP [Suspect]
     Indication: RESTLESS LEGS SYNDROME
     Dosage: 1MG UNKNOWN
     Route: 048
     Dates: start: 20060101
  2. ROPINIROLE [Suspect]
     Indication: RESTLESS LEGS SYNDROME
     Dosage: 1MG UNKNOWN
     Route: 065
     Dates: start: 20080519
  3. OXYCODONE HCL [Concomitant]
  4. KLOR-CON [Concomitant]
  5. AMITRIPTYLINE HCL [Concomitant]
  6. CELEXA [Concomitant]
  7. FLONASE [Concomitant]
  8. LEVOXYL [Concomitant]
  9. SINGULAIR [Concomitant]
  10. DEMADEX [Concomitant]
  11. NORVASC [Concomitant]
  12. COZAAR [Concomitant]
  13. ALPRAZOLAM [Concomitant]

REACTIONS (1)
  - GAMBLING [None]
